FAERS Safety Report 6367493-4 (Version None)
Quarter: 2009Q3

REPORT INFORMATION
  Report Type: 
  Country: None (occurrence: None)
  Receive Date: 20090915
  Receipt Date: 20090908
  Transmission Date: 20100115
  Serious: Yes (Other)
  Sender: FDA-Public Use
  Company Number: A0797705A

PATIENT
  Age: 51 Year
  Sex: Male

DRUGS (1)
  1. UREA PEROXIDE [Suspect]
     Indication: CERUMEN REMOVAL
     Dosage: AURAL

REACTIONS (3)
  - DEAFNESS UNILATERAL [None]
  - EAR DISCOMFORT [None]
  - EAR PAIN [None]
